FAERS Safety Report 24075187 (Version 1)
Quarter: 2024Q3

REPORT INFORMATION
  Report Type: Report from Study
  Country: BR (occurrence: BR)
  Receive Date: 20240710
  Receipt Date: 20240710
  Transmission Date: 20241017
  Serious: Yes (Other)
  Sender: JOHNSON AND JOHNSON
  Company Number: BR-JNJFOC-20240714536

PATIENT
  Age: 48 Year
  Sex: Female

DRUGS (1)
  1. SIMPONI [Suspect]
     Active Substance: GOLIMUMAB
     Indication: Ankylosing spondylitis
     Route: 058

REACTIONS (10)
  - Borrelia infection [Unknown]
  - Thrombosis [Unknown]
  - Pain [Unknown]
  - Pain [Unknown]
  - Pelvic pain [Unknown]
  - Dizziness [Unknown]
  - Coagulopathy [Unknown]
  - Insomnia [Unknown]
  - Joint stiffness [Unknown]
  - Anaemia [Unknown]
